FAERS Safety Report 25230300 (Version 1)
Quarter: 2025Q2

REPORT INFORMATION
  Report Type: Spontaneous
  Country: US (occurrence: None)
  Receive Date: 20250422
  Receipt Date: 20250422
  Transmission Date: 20250716
  Serious: Yes (Other)
  Sender: FDA-CTU
  Company Number: None

PATIENT
  Age: 34 Year
  Sex: Female

DRUGS (1)
  1. LUPRON DEPOT [Suspect]
     Active Substance: LEUPROLIDE ACETATE
     Dosage: OTHER FREQUENCY : EVERY 4 WEEKS;?
     Route: 030
     Dates: start: 20250422

REACTIONS (3)
  - Hot flush [None]
  - Mood swings [None]
  - Heavy menstrual bleeding [None]

NARRATIVE: CASE EVENT DATE: 20250422
